FAERS Safety Report 23874202 (Version 1)
Quarter: 2024Q2

REPORT INFORMATION
  Report Type: Spontaneous
  Country: US (occurrence: None)
  Receive Date: 20240517
  Receipt Date: 20240517
  Transmission Date: 20240715
  Serious: Yes (Other)
  Sender: FDA-Public Use
  Company Number: None

PATIENT
  Age: 53 Year
  Sex: Female
  Weight: 90 kg

DRUGS (3)
  1. CLONIDINE [Suspect]
     Active Substance: CLONIDINE
     Indication: Hypertension
     Dosage: 60 TABLETS TWICE A DAY ORAL
     Route: 048
     Dates: start: 20240318, end: 20240515
  2. EYE GLASESS [Concomitant]
  3. HYDROCHLOROTHIAZIDE [Concomitant]
     Active Substance: HYDROCHLOROTHIAZIDE

REACTIONS (10)
  - Adverse drug reaction [None]
  - Oedema peripheral [None]
  - Pain in extremity [None]
  - Pain [None]
  - Oedema peripheral [None]
  - Pain in extremity [None]
  - Arthralgia [None]
  - Peripheral swelling [None]
  - Burning sensation [None]
  - Joint stiffness [None]

NARRATIVE: CASE EVENT DATE: 20240515
